FAERS Safety Report 21166081 (Version 1)
Quarter: 2022Q3

REPORT INFORMATION
  Report Type: Spontaneous
  Country: ZA (occurrence: ZA)
  Receive Date: 20220803
  Receipt Date: 20220803
  Transmission Date: 20221027
  Serious: Yes (Other)
  Sender: FDA-Public Use
  Company Number: ZA-HORMOSAN-2022-09896

PATIENT
  Age: 66 Year
  Sex: Female

DRUGS (8)
  1. PAROXETINE HYDROCHLORIDE [Suspect]
     Active Substance: PAROXETINE HYDROCHLORIDE
     Indication: Depression
     Dosage: 20 MG
     Route: 048
  2. BUDESONIDE\FORMOTEROL [Suspect]
     Active Substance: BUDESONIDE\FORMOTEROL
     Indication: Asthma
     Dosage: UNK, 160/4.5 MICROGRAM
     Dates: start: 202201
  3. WARFARIN [Suspect]
     Active Substance: WARFARIN
     Indication: Anticoagulant therapy
     Dosage: 5 MG
     Route: 048
  4. AZASAN [Suspect]
     Active Substance: AZATHIOPRINE
     Indication: Organ transplant
     Dosage: 50 MG
     Route: 048
  5. CHLOROQUINE SULFATE [Suspect]
     Active Substance: CHLOROQUINE SULFATE
     Indication: Systemic lupus erythematosus
     Dosage: 200 MG
     Route: 048
     Dates: start: 202207
  6. ETORICOXIB [Suspect]
     Active Substance: ETORICOXIB
     Indication: Inflammation
     Dosage: 90 MG
     Route: 048
  7. OMEPRAZOLE [Suspect]
     Active Substance: OMEPRAZOLE
     Indication: Ulcer
     Dosage: 20 MG
     Route: 048
  8. ACETAMINOPHEN\TRAMADOL HYDROCHLORIDE [Suspect]
     Active Substance: ACETAMINOPHEN\TRAMADOL HYDROCHLORIDE
     Indication: Pain
     Dosage: UNK
     Route: 048

REACTIONS (3)
  - Systemic lupus erythematosus [Unknown]
  - Tuberculosis [Unknown]
  - H1N1 influenza [Unknown]
